FAERS Safety Report 24624647 (Version 1)
Quarter: 2024Q4

REPORT INFORMATION
  Report Type: Report from Study
  Country: ES (occurrence: ES)
  Receive Date: 20241115
  Receipt Date: 20241115
  Transmission Date: 20250114
  Serious: Yes (Other)
  Sender: ABBVIE
  Company Number: ES-ABBVIE-6001039

PATIENT
  Age: 78 Year
  Sex: Female

DRUGS (2)
  1. CARBIDOPA\LEVODOPA [Suspect]
     Active Substance: CARBIDOPA\LEVODOPA
     Indication: Parkinson^s disease
     Dosage: 240 MG/ML + 12 MG/ML
     Route: 058
     Dates: start: 20240222, end: 202411
  2. CARBIDOPA\LEVODOPA [Suspect]
     Active Substance: CARBIDOPA\LEVODOPA
     Dosage: CHANGED THE EXTRA DOSE TO 0.10 ML, START THE CONTINUOUS INFUSION PUMP WITH A HIGH DOSE. ?240 MG/M...
     Route: 058
     Dates: start: 202411

REACTIONS (4)
  - Syncope [Recovered/Resolved]
  - Freezing phenomenon [Recovered/Resolved]
  - Dizziness [Unknown]
  - Tremor [Recovering/Resolving]

NARRATIVE: CASE EVENT DATE: 20241108
